FAERS Safety Report 6637358-9 (Version None)
Quarter: 2010Q1

REPORT INFORMATION
  Report Type: 
  Country: None (occurrence: None)
  Receive Date: 20100311
  Receipt Date: 20100304
  Transmission Date: 20100710
  Serious: Yes (Disabling)
  Sender: FDA-Public Use
  Company Number: WAES 1003CAN00016

PATIENT
  Age: 41 Year
  Sex: Female

DRUGS (10)
  1. TAB MK-0518 [Suspect]
     Indication: HIV INFECTION
     Dosage: 400 MG BID PO
     Route: 048
     Dates: start: 20090514
  2. TAB BLINDED THERAPY [Suspect]
     Indication: HIV INFECTION
     Dosage: PO
     Route: 048
     Dates: start: 20060512, end: 20090513
  3. LAMIVUDINE [Suspect]
     Indication: HIV INFECTION
     Dosage: 300 MG DAILY
     Dates: start: 20060512
  4. TENOFOVIR DISOPROXIL FUMARATE [Suspect]
     Indication: HIV INFECTION
     Dosage: 300 MG DAILY
     Dates: start: 20020512
  5. ATAZANAVIR SULFATE [Suspect]
     Indication: HIV INFECTION
     Dosage: 300 MG DAILY
     Dates: start: 20060512
  6. RITONAVIR [Suspect]
     Indication: HIV INFECTION
     Dosage: 100 MG DAILY
     Dates: start: 20060512
  7. ACETAMINOPHEN [Concomitant]
  8. FERROUS FUMARATE [Concomitant]
  9. IBUPROFEN [Concomitant]
  10. ZOLMITRIPTAN [Concomitant]

REACTIONS (1)
  - BREAST CANCER FEMALE [None]
